FAERS Safety Report 25600656 (Version 1)
Quarter: 2025Q3

REPORT INFORMATION
  Report Type: Spontaneous
  Country: EU (occurrence: EU)
  Receive Date: 20250724
  Receipt Date: 20250724
  Transmission Date: 20251020
  Serious: Yes (Other)
  Sender: MYLAN
  Company Number: EU-MYLANLABS-2025M1061889

PATIENT
  Sex: Female

DRUGS (21)
  1. METHYLPHENIDATE [Suspect]
     Active Substance: METHYLPHENIDATE
     Indication: Attention deficit hyperactivity disorder
  2. METHYLPHENIDATE [Suspect]
     Active Substance: METHYLPHENIDATE
     Indication: Attention deficit hyperactivity disorder
  3. METHYLPHENIDATE [Suspect]
     Active Substance: METHYLPHENIDATE
  4. METHYLPHENIDATE [Suspect]
     Active Substance: METHYLPHENIDATE
  5. ALPRAZOLAM [Suspect]
     Active Substance: ALPRAZOLAM
     Indication: Tic
  6. ALPRAZOLAM [Suspect]
     Active Substance: ALPRAZOLAM
     Indication: Anxiety
  7. CHOLECALCIFEROL [Suspect]
     Active Substance: CHOLECALCIFEROL
     Indication: Anxiety
  8. CHOLECALCIFEROL [Suspect]
     Active Substance: CHOLECALCIFEROL
     Indication: Depression
  9. CITALOPRAM [Suspect]
     Active Substance: CITALOPRAM
     Indication: Depression
  10. ATOMOXETINE [Suspect]
     Active Substance: ATOMOXETINE
     Indication: Attention deficit hyperactivity disorder
  11. GUANFACINE [Suspect]
     Active Substance: GUANFACINE
     Indication: Attention deficit hyperactivity disorder
  12. GUANFACINE [Suspect]
     Active Substance: GUANFACINE
  13. DIVALPROEX SODIUM [Suspect]
     Active Substance: DIVALPROEX SODIUM
     Indication: Self-destructive behaviour
  14. MELATONIN [Suspect]
     Active Substance: MELATONIN
     Indication: Insomnia
  15. ZINC [Concomitant]
     Active Substance: ZINC
     Indication: Mineral supplementation
  16. MAGNESIUM [Concomitant]
     Active Substance: MAGNESIUM
     Indication: Mineral supplementation
  17. ESCITALOPRAM [Concomitant]
     Active Substance: ESCITALOPRAM OXALATE
     Indication: Depression
  18. ESCITALOPRAM [Concomitant]
     Active Substance: ESCITALOPRAM OXALATE
     Indication: Generalised anxiety disorder
  19. VITAMIN A [Concomitant]
     Active Substance: VITAMIN A
     Indication: Vitamin supplementation
  20. COENZYME Q10 [Concomitant]
     Active Substance: DIETARY SUPPLEMENT\UBIDECARENONE
     Indication: Supplementation therapy
  21. Amfetamine sulfate;Dexamfetamine [Concomitant]
     Indication: Attention deficit hyperactivity disorder

REACTIONS (2)
  - Drug ineffective [Unknown]
  - Off label use [Unknown]
